FAERS Safety Report 8923812 (Version 1)
Quarter: 2012Q4

REPORT INFORMATION
  Report Type: 
  Country: US (occurrence: US)
  Receive Date: 20121126
  Receipt Date: 20121126
  Transmission Date: 20130627
  Serious: Yes (Other)
  Sender: FDA-Public Use
  Company Number: US-BAYER-2012-121467

PATIENT
  Age: 64 Year
  Sex: Male
  Weight: 87 kg

DRUGS (8)
  1. CIPRO [Suspect]
     Indication: SINUSITIS
     Dosage: UNK
     Route: 065
     Dates: start: 2012
  2. REMICADE [Suspect]
     Indication: COLITIS ULCERATIVE
     Dosage: 5 mg, Q6WK
     Route: 042
     Dates: start: 201204, end: 201207
  3. REMICADE [Suspect]
     Indication: COLITIS ULCERATIVE
     Dosage: 10 mg, Q6WK
     Route: 042
     Dates: start: 201207
  4. AMOXICILLIN [Suspect]
     Indication: SINUSITIS
     Dosage: UNK
     Route: 065
     Dates: start: 2012
  5. ANTIBIOTICS [Suspect]
     Indication: OSTEOMYELITIS OF JAW
     Dosage: UNK
     Route: 042
     Dates: start: 2012, end: 2012
  6. PLAVIX [Concomitant]
     Indication: STENT PLACEMENT
     Dosage: UNK
     Route: 048
     Dates: start: 2008
  7. ZESTRIL [Concomitant]
     Indication: BLOOD PRESSURE ABNORMAL
     Dosage: UNK
     Route: 048
     Dates: start: 1997
  8. TRICOR [Concomitant]
     Indication: BLOOD CHOLESTEROL ABNORMAL
     Dosage: UNK
     Route: 048
     Dates: start: 2007

REACTIONS (5)
  - Oral infection [Not Recovered/Not Resolved]
  - Sinusitis [Recovered/Resolved]
  - Gingival infection [Not Recovered/Not Resolved]
  - Tooth abscess [Recovered/Resolved]
  - Drug ineffective [None]
